FAERS Safety Report 9376360 (Version 1)
Quarter: 2013Q3

REPORT INFORMATION
  Report Type: Spontaneous
  Country: US (occurrence: US)
  Receive Date: 20130701
  Receipt Date: 20130701
  Transmission Date: 20140515
  Serious: Yes (Hospitalization)
  Sender: FDA-Public Use
  Company Number: US201001001907

PATIENT
  Age: 63 Year
  Sex: Male
  Weight: 81.63 kg

DRUGS (7)
  1. BYETTA PEN DISPOSABLE [Suspect]
     Indication: TYPE 2 DIABETES MELLITUS
     Dosage: 5MCG,BID FOR ONE MNTH AND ON 10MCG,BID,2007?LOT#96713A,APR14
     Route: 058
     Dates: start: 2007, end: 2007
  2. EXENATIDE 5MCG PEN, DISPOSABLE DEVICE [Concomitant]
  3. EXENATIDE 10MCG PEN, DISPOSABLE DEVICE [Concomitant]
  4. MICARDIS [Concomitant]
     Indication: HYPERTENSION
     Route: 048
     Dates: start: 2007
  5. SIMVASTATIN [Concomitant]
     Indication: BLOOD CHOLESTEROL
     Route: 048
  6. LOVAZA [Concomitant]
     Indication: BLOOD TRIGLYCERIDES
     Route: 048
  7. CARDIZEM [Concomitant]
     Indication: HYPERTENSION
     Route: 048
     Dates: end: 2007

REACTIONS (7)
  - Heart rate decreased [Recovered/Resolved]
  - Dyspnoea [Recovered/Resolved]
  - Drug ineffective [Recovered/Resolved]
  - Dyspnoea [Unknown]
  - Muscular weakness [Recovering/Resolving]
  - Blood glucose increased [Not Recovered/Not Resolved]
  - Weight decreased [Not Recovered/Not Resolved]
